FAERS Safety Report 5247104-1 (Version None)
Quarter: 2007Q1

REPORT INFORMATION
  Report Type: 
  Country: None (occurrence: None)
  Receive Date: 20070226
  Receipt Date: 20070222
  Transmission Date: 20070707
  Serious: Yes (Other)
  Sender: FDA-Public Use
  Company Number: PT-MERCK-0702PRT00007

PATIENT
  Age: 57 Year
  Sex: Female
  Weight: 70 kg

DRUGS (3)
  1. FOSAMAX PLUS D [Suspect]
     Indication: OSTEOPOROSIS
     Route: 048
     Dates: start: 20070107, end: 20070114
  2. TIBOLONE [Concomitant]
     Route: 065
     Dates: start: 20061101
  3. PIRACETAM [Concomitant]
     Route: 065
     Dates: start: 20060601

REACTIONS (1)
  - CONJUNCTIVITIS [None]
